FAERS Safety Report 15739779 (Version 1)
Quarter: 2018Q4

REPORT INFORMATION
  Report Type: Spontaneous
  Country: DE (occurrence: DE)
  Receive Date: 20181219
  Receipt Date: 20181219
  Transmission Date: 20190205
  Serious: Yes (Death, Hospitalization)
  Sender: FDA-Public Use
  Company Number: DE-ORPHAN EUROPE-2060371

PATIENT

DRUGS (4)
  1. L-CARNITINE [Concomitant]
     Active Substance: LEVOCARNITINE
  2. PROPRANOLOL [Concomitant]
     Active Substance: PROPRANOLOL HYDROCHLORIDE
  3. VITAMIN D [Concomitant]
     Active Substance: CHOLECALCIFEROL
  4. CARBAGLU [Suspect]
     Active Substance: CARGLUMIC ACID
     Indication: HYPERGLYCINAEMIA
     Route: 048
     Dates: start: 20180305, end: 20181104

REACTIONS (4)
  - Demyelination [Fatal]
  - Lactic acidosis [Fatal]
  - Autoimmune encephalopathy [Fatal]
  - Cardiac failure [Fatal]

NARRATIVE: CASE EVENT DATE: 20181029
